FAERS Safety Report 25254892 (Version 1)
Quarter: 2025Q2

REPORT INFORMATION
  Report Type: Spontaneous
  Country: FR (occurrence: FR)
  Receive Date: 20250430
  Receipt Date: 20250430
  Transmission Date: 20250716
  Serious: Yes (Other)
  Sender: AUROBINDO
  Company Number: FR-AFSSAPS-ST2025000418

PATIENT
  Age: 19 Month
  Sex: Male
  Weight: 10.48 kg

DRUGS (1)
  1. AMOXICILLIN [Suspect]
     Active Substance: AMOXICILLIN
     Indication: Otitis media acute
     Dosage: 90 MILLIGRAM/KILOGRAM, ONCE A DAY (30 MG/KG X 3/J)
     Route: 048
     Dates: start: 20221227, end: 20230102

REACTIONS (2)
  - Urticaria [Recovered/Resolved]
  - Gait disturbance [Recovered/Resolved]

NARRATIVE: CASE EVENT DATE: 20230102
